FAERS Safety Report 16349873 (Version 2)
Quarter: 2019Q2

REPORT INFORMATION
  Report Type: Spontaneous
  Country: ES (occurrence: ES)
  Receive Date: 20190523
  Receipt Date: 20190604
  Transmission Date: 20190711
  Serious: Yes (Other)
  Sender: FDA-Public Use
  Company Number: ES-PFIZER INC-2019213360

PATIENT
  Age: 30 Year
  Sex: Male

DRUGS (1)
  1. CAVERJECT [Suspect]
     Active Substance: ALPROSTADIL
     Dosage: 20 UG, (2 INJECTIONS OF 10 UG)

REACTIONS (10)
  - Erectile dysfunction [Unknown]
  - Condition aggravated [Unknown]
  - Penile pain [Recovered/Resolved]
  - Penile contusion [Recovered/Resolved]
  - Penile oedema [Recovered/Resolved]
  - Product use issue [Unknown]
  - Therapeutic product effect incomplete [Unknown]
  - Intentional product use issue [Unknown]
  - Penile vascular disorder [Unknown]
  - Off label use [Unknown]
